FAERS Safety Report 16909664 (Version 1)
Quarter: 2019Q4

REPORT INFORMATION
  Report Type: Report from Study
  Country: CO (occurrence: CO)
  Receive Date: 20191011
  Receipt Date: 20191011
  Transmission Date: 20200122
  Serious: Yes (Death, Hospitalization)
  Sender: FDA-Public Use
  Company Number: CO-JNJFOC-20190826447

PATIENT
  Age: 61 Year
  Sex: Male

DRUGS (1)
  1. DARATUMUMAB [Suspect]
     Active Substance: DARATUMUMAB
     Indication: PLASMA CELL MYELOMA
     Dosage: TREATMENT DISCONTINUED DUE TO OTHER EXAMINATIONS IN PROCESS
     Route: 065
     Dates: start: 20170929, end: 2017

REACTIONS (6)
  - Respiratory tract infection [Unknown]
  - Death [Fatal]
  - Asthenia [Unknown]
  - Somnolence [Unknown]
  - Product dose omission [Unknown]
  - Pain [Unknown]

NARRATIVE: CASE EVENT DATE: 20180119
